FAERS Safety Report 10270699 (Version 1)
Quarter: 2014Q3

REPORT INFORMATION
  Report Type: Spontaneous
  Country: CA (occurrence: CA)
  Receive Date: 20140701
  Receipt Date: 20140701
  Transmission Date: 20150326
  Serious: Yes (Death)
  Sender: FDA-Public Use
  Company Number: CA-PFIZER INC-2014178371

PATIENT
  Age: 95 Year
  Sex: Male

DRUGS (21)
  1. VIAGRA [Suspect]
     Active Substance: SILDENAFIL CITRATE
     Indication: ERECTILE DYSFUNCTION
     Dosage: 50 TO 100 MG AS NEEDED TO A MAXIMUM OF 100 MG PER DAY
     Dates: start: 20041018
  2. SPIRONOLACTONE TEVA [Concomitant]
     Active Substance: SPIRONOLACTONE
     Dosage: 25 MG (1/4 OF 100 MG), 2X/DAY
     Dates: start: 20110210
  3. KOFFEX DM [Concomitant]
     Indication: COUGH
     Dosage: UNK
     Dates: start: 20020205, end: 2011
  4. DOCUSATE SODIUM (TARO) [Concomitant]
     Dosage: 100 MG, 2X/DAY
     Dates: start: 20080822, end: 20110327
  5. ALDACTONE [Concomitant]
     Active Substance: SPIRONOLACTONE
     Dosage: 25 MG, 2X/DAY
     Dates: start: 20101109
  6. TRAZODONE (TEVA) [Concomitant]
     Dosage: 100 MG, 1X/DAY AT BEDTIME
     Dates: start: 20110322
  7. APO-ACETAMINOPHEN [Concomitant]
     Indication: PAIN
     Dosage: 500 MG,  1-2 DF 4 X DAILY AS NEEDED
     Dates: start: 20061117
  8. APO-FUROSEMIDE [Concomitant]
     Dosage: 20 MG, 1X/DAY
     Dates: start: 20070604, end: 20090707
  9. PREVACID [Concomitant]
     Active Substance: LANSOPRAZOLE
     Dosage: 30 MG, 1X/DAY
     Dates: start: 20080822, end: 20110327
  10. APO-METOPROLOL [Concomitant]
     Dosage: 12.5 MG, ( 1/4 OF 50 MG TABLET) 2X/DAY
     Dates: start: 20110124, end: 20110327
  11. APO-FUROSEMIDE [Concomitant]
     Dosage: 30 MG, 1X/DAY
     Dates: start: 20090708, end: 20100808
  12. APO-FUROSEMIDE [Concomitant]
     Dosage: 100 MG, 2X/DAY
     Dates: start: 20101007
  13. APO-FERROUS GLUCONATE [Concomitant]
     Dosage: 300/35 MG ONE TABLET ONCE DAILY
     Dates: start: 20090224, end: 20110327
  14. APO-AMOXI [Concomitant]
     Active Substance: AMOXICILLIN
     Dosage: 250 MG, 3X/DAY
     Dates: start: 20110112
  15. SLOW-K [Concomitant]
     Active Substance: POTASSIUM CHLORIDE
     Dosage: 16 MEQ, 2X/DAY
     Dates: start: 20100805
  16. TRAZODONE (TEVA) [Concomitant]
     Dosage: 50 MG, 1X/DAY AT BEDTIME
     Dates: start: 20110225
  17. PRADAXA [Concomitant]
     Active Substance: DABIGATRAN ETEXILATE MESYLATE
     Dosage: 110 MG, 2X/DAY
     Dates: start: 20110113
  18. SPIRONOLACTONE TEVA [Concomitant]
     Active Substance: SPIRONOLACTONE
     Dosage: 25 MG, 2X/DAY
     Dates: start: 20100914, end: 20101108
  19. APO-FUROSEMIDE [Concomitant]
     Dosage: 80 MG, 2X/DAY
     Dates: start: 20100809, end: 20101006
  20. ENSURE [Concomitant]
     Active Substance: AMINO ACIDS\DEXTROSE\ELECTROLYTES NOS\SOYBEAN OIL\VITAMINS
     Dosage: 1 CAN DAILY
     Dates: start: 20100608
  21. RATIO-CODEINE [Concomitant]
     Dosage: 5 ML, 4X/DAY, AS NEEDED
     Dates: start: 20110112

REACTIONS (1)
  - Death [Fatal]
